FAERS Safety Report 6329166-3 (Version None)
Quarter: 2009Q3

REPORT INFORMATION
  Report Type: 
  Country: None (occurrence: None)
  Receive Date: 20090826
  Receipt Date: 20080725
  Transmission Date: 20100115
  Serious: No
  Sender: FDA-Public Use
  Company Number: US-ASTRAZENECA-2008UW14901

PATIENT
  Age: 57 Year
  Sex: Male

DRUGS (1)
  1. IRESSA [Suspect]

REACTIONS (5)
  - DIARRHOEA [None]
  - DRY EYE [None]
  - DRY SKIN [None]
  - RASH [None]
  - SKIN DISORDER [None]
